FAERS Safety Report 6416482-X (Version None)
Quarter: 2009Q4

REPORT INFORMATION
  Report Type: 
  Country: None (occurrence: None)
  Receive Date: 20091027
  Receipt Date: 20091014
  Transmission Date: 20100525
  Serious: Yes (Other)
  Sender: FDA-Public Use
  Company Number: PHEH2009US13872

PATIENT
  Sex: Female

DRUGS (1)
  1. EXJADE [Suspect]
     Dosage: 1500 UNK, QD
     Route: 048
     Dates: start: 20090421, end: 20090922

REACTIONS (7)
  - AURICULAR SWELLING [None]
  - DIZZINESS [None]
  - FATIGUE [None]
  - NAUSEA [None]
  - SUDDEN HEARING LOSS [None]
  - VISION BLURRED [None]
  - VOMITING [None]
